FAERS Safety Report 23652127 (Version 1)
Quarter: 2024Q1

REPORT INFORMATION
  Report Type: Spontaneous
  Country: US (occurrence: US)
  Receive Date: 20240320
  Receipt Date: 20240320
  Transmission Date: 20240410
  Serious: Yes (Other)
  Sender: FDA-Public Use
  Company Number: US-ALKEM LABORATORIES LIMITED-US-ALKEM-2024-00730

PATIENT
  Age: 3 Month
  Sex: Female

DRUGS (2)
  1. EVEROLIMUS [Suspect]
     Active Substance: EVEROLIMUS
     Indication: Kaposiform haemangioendothelioma
     Dosage: 0.2 MILLIGRAM/KILOGRAM, QD
     Route: 065
  2. EVEROLIMUS [Suspect]
     Active Substance: EVEROLIMUS
     Indication: Haemangioma-thrombocytopenia syndrome

REACTIONS (1)
  - Pneumocystis jirovecii pneumonia [Recovered/Resolved]
